FAERS Safety Report 6843141-1 (Version None)
Quarter: 2010Q3

REPORT INFORMATION
  Report Type: 
  Country: None (occurrence: None)
  Receive Date: 20100715
  Receipt Date: 20100707
  Transmission Date: 20110219
  Serious: No
  Sender: FDA-Public Use
  Company Number: US-BIOGENIDEC-2008BI027826

PATIENT
  Age: 46 Year
  Sex: Female

DRUGS (1)
  1. TYSABRI [Suspect]
     Indication: MULTIPLE SCLEROSIS
     Route: 042
     Dates: start: 20081003

REACTIONS (9)
  - DENTAL CARIES [None]
  - GINGIVAL RECESSION [None]
  - LOOSE TOOTH [None]
  - SENSITIVITY OF TEETH [None]
  - TEETH BRITTLE [None]
  - TONGUE ULCERATION [None]
  - TOOTH DISORDER [None]
  - TOOTH FRACTURE [None]
  - TOOTHACHE [None]
